FAERS Safety Report 21002369 (Version 2)
Quarter: 2022Q3

REPORT INFORMATION
  Report Type: Spontaneous
  Country: JP (occurrence: JP)
  Receive Date: 20220624
  Receipt Date: 20220715
  Transmission Date: 20221027
  Serious: Yes (Death, Hospitalization, Other)
  Sender: FDA-Public Use
  Company Number: JP-ONO-2020JP026423

PATIENT
  Age: 67 Year
  Sex: Male
  Weight: 63 kg

DRUGS (16)
  1. PARSABIV [Suspect]
     Active Substance: ETELCALCETIDE HYDROCHLORIDE
     Indication: Hyperparathyroidism secondary
     Dosage: 2.5 MILLIGRAM, Q56H
     Route: 010
     Dates: start: 20200520, end: 20200621
  2. PARSABIV [Suspect]
     Active Substance: ETELCALCETIDE HYDROCHLORIDE
     Dosage: 5 MILLIGRAM, Q56H
     Route: 010
     Dates: start: 20200624, end: 20200713
  3. PARSABIV [Suspect]
     Active Substance: ETELCALCETIDE HYDROCHLORIDE
     Dosage: 7.5 MILLIGRAM, Q56H
     Route: 010
     Dates: start: 20200715, end: 20201130
  4. PARSABIV [Suspect]
     Active Substance: ETELCALCETIDE HYDROCHLORIDE
     Dosage: 5 MILLIGRAM, Q56H
     Route: 010
     Dates: start: 20201202
  5. OXAROL MARUHO [Concomitant]
     Dosage: 10 MUG, Q84H
     Route: 065
     Dates: start: 20180323, end: 20200518
  6. OXAROL MARUHO [Concomitant]
     Dosage: 5 MUG, Q56H
     Route: 065
     Dates: start: 20200520, end: 20200608
  7. OXAROL MARUHO [Concomitant]
     Dosage: 10 MUG, Q56H
     Route: 065
     Dates: start: 20200610, end: 20200713
  8. OXAROL MARUHO [Concomitant]
     Dosage: 7.5 MUG, Q56H
     Route: 065
     Dates: start: 20200715, end: 20210528
  9. OXAROL MARUHO [Concomitant]
     Dosage: 5 MUG, Q84H
     Route: 065
     Dates: start: 20210531, end: 20210709
  10. OXAROL MARUHO [Concomitant]
     Dosage: 7.5 MUG, QW
     Route: 065
     Dates: start: 20210531, end: 20210611
  11. OXAROL MARUHO [Concomitant]
     Dosage: 10 MUG, Q84H
     Route: 065
     Dates: start: 20210712, end: 20211022
  12. OXAROL MARUHO [Concomitant]
     Dosage: 5 MUG, Q84H
     Route: 065
     Dates: start: 20211025
  13. EVOCALCET [Concomitant]
     Active Substance: EVOCALCET
     Dosage: 1 MG, EVERYDAY
     Route: 048
     Dates: start: 20181114, end: 20190108
  14. EVOCALCET [Concomitant]
     Active Substance: EVOCALCET
     Dosage: 2 MG, EVERYDAY
     Route: 048
     Dates: start: 20190130, end: 20200524
  15. FOSRENOL [Concomitant]
     Active Substance: LANTHANUM CARBONATE
     Dosage: 1500 MG, EVERYDAY
     Route: 048
  16. FOSRENOL [Concomitant]
     Active Substance: LANTHANUM CARBONATE
     Dosage: 750 MG, EVERYDAY
     Route: 048
     Dates: start: 20201019

REACTIONS (7)
  - Pneumonia [Fatal]
  - Shunt stenosis [Recovered/Resolved]
  - Shunt stenosis [Recovered/Resolved]
  - Shunt stenosis [Recovered/Resolved]
  - Shunt stenosis [Recovered/Resolved]
  - Shunt stenosis [Recovered/Resolved]
  - Shunt stenosis [Recovered/Resolved]

NARRATIVE: CASE EVENT DATE: 20200714
